FAERS Safety Report 21211517 (Version 1)
Quarter: 2022Q3

REPORT INFORMATION
  Report Type: Spontaneous
  Country: JP (occurrence: JP)
  Receive Date: 20220815
  Receipt Date: 20220815
  Transmission Date: 20221027
  Serious: Yes (Hospitalization)
  Sender: FDA-Public Use
  Company Number: JP-GSKNCCC-Case-01552052_AE-61082

PATIENT

DRUGS (1)
  1. FLUTICASONE FUROATE [Suspect]
     Active Substance: FLUTICASONE FUROATE
     Indication: Nasal congestion
     Dosage: 110 UG
     Route: 045
     Dates: start: 202206

REACTIONS (4)
  - Depression [Unknown]
  - Drug ineffective [Unknown]
  - Overdose [Unknown]
  - Wrong technique in product usage process [Unknown]
